FAERS Safety Report 4544914-0 (Version None)
Quarter: 2005Q1

REPORT INFORMATION
  Report Type: 
  Country: None (occurrence: None)
  Receive Date: 20050105
  Receipt Date: 20041227
  Transmission Date: 20050727
  Serious: Yes (Hospitalization)
  Sender: FDA-Public Use
  Company Number: PHHO2004JP18426

PATIENT
  Age: 73 Year
  Sex: Female
  Weight: 73 kg

DRUGS (3)
  1. DIOVAN [Suspect]
     Indication: HYPERTENSION
     Dosage: 80 MG, QD
     Route: 048
     Dates: start: 20030901
  2. NATEGLINIDE [Concomitant]
     Indication: DIABETES MELLITUS
     Dates: start: 20030901
  3. GLUCOBAY [Concomitant]
     Indication: DIABETES MELLITUS

REACTIONS (6)
  - DEPRESSED LEVEL OF CONSCIOUSNESS [None]
  - DYSARTHRIA [None]
  - FALL [None]
  - NAUSEA [None]
  - THROMBOTIC STROKE [None]
  - VOMITING [None]
